FAERS Safety Report 25926834 (Version 1)
Quarter: 2025Q4

REPORT INFORMATION
  Report Type: Spontaneous
  Country: US (occurrence: None)
  Receive Date: 20251015
  Receipt Date: 20251015
  Transmission Date: 20260118
  Serious: Yes (Other)
  Sender: FDA-CTU
  Company Number: None

PATIENT
  Age: 39 Year
  Sex: Female

DRUGS (1)
  1. DIMETHYL FUMARATE [Suspect]
     Active Substance: DIMETHYL FUMARATE
     Indication: Multiple sclerosis
     Dosage: 240MG TWICE DAILY ?

REACTIONS (8)
  - Flushing [None]
  - Burning sensation [None]
  - Pruritus [None]
  - Memory impairment [None]
  - Thinking abnormal [None]
  - Haemoglobin decreased [None]
  - Speech disorder [None]
  - Brain fog [None]
